FAERS Safety Report 22628461 (Version 1)
Quarter: 2023Q2

REPORT INFORMATION
  Report Type: Spontaneous
  Country: US (occurrence: None)
  Receive Date: 20230621
  Receipt Date: 20230621
  Transmission Date: 20230721
  Serious: No
  Sender: FDA-Public Use
  Company Number: None

PATIENT
  Age: 56 Year
  Sex: Female
  Weight: 58.5 kg

DRUGS (1)
  1. COBALAMIN [Suspect]
     Active Substance: COBALAMIN
     Route: 058
     Dates: start: 20230620

REACTIONS (7)
  - Injection site mass [None]
  - Injection site induration [None]
  - Injection site pain [None]
  - Contusion [None]
  - Sensitive skin [None]
  - Insomnia [None]
  - Pain [None]

NARRATIVE: CASE EVENT DATE: 20230620
